FAERS Safety Report 21627232 (Version 4)
Quarter: 2023Q1

REPORT INFORMATION
  Report Type: Report from Study
  Country: US (occurrence: US)
  Receive Date: 20221122
  Receipt Date: 20230331
  Transmission Date: 20230417
  Serious: No
  Sender: FDA-Public Use
  Company Number: US-002147023-NVSC2022US262456

PATIENT
  Sex: Male

DRUGS (1)
  1. KESIMPTA [Suspect]
     Active Substance: OFATUMUMAB
     Indication: Product used for unknown indication
     Dosage: UNK
     Route: 065

REACTIONS (10)
  - Influenza like illness [Unknown]
  - Nasopharyngitis [Unknown]
  - Insomnia [Unknown]
  - Chills [Unknown]
  - Musculoskeletal disorder [Unknown]
  - Feeling abnormal [Unknown]
  - Headache [Unknown]
  - Oropharyngeal pain [Unknown]
  - Aphonia [Unknown]
  - Rhinorrhoea [Unknown]
